FAERS Safety Report 4863130-6 (Version None)
Quarter: 2005Q4

REPORT INFORMATION
  Report Type: 
  Country: None (occurrence: None)
  Receive Date: 20051201
  Receipt Date: 20051022
  Transmission Date: 20060501
  Serious: No
  Sender: FDA-Public Use
  Company Number: 32844

PATIENT
  Age: 62 Year
  Sex: Female

DRUGS (22)
  1. NEVANAC [Suspect]
     Indication: EYE PAIN
     Dosage: 1 GTT OD TID OPHT
     Route: 047
     Dates: start: 20050929, end: 20051013
  2. PREDNISONE [Concomitant]
  3. PHENYTOIN [Concomitant]
  4. NEURONTIN [Concomitant]
  5. ESTRADIOL INJ [Concomitant]
  6. VERAPAMIL [Concomitant]
  7. HYDROXYZINE [Concomitant]
  8. ALLEGRA [Concomitant]
  9. PROZAC [Concomitant]
  10. OXYTOL [Concomitant]
  11. VIOXX [Concomitant]
  12. PROTONIX [Concomitant]
  13. BENZONATATE [Concomitant]
  14. SPIRIVA [Concomitant]
  15. FLONASE [Concomitant]
  16. SINGULAIR [Concomitant]
  17. COMBIVENT [Concomitant]
  18. PROVENTIL [Concomitant]
  19. ASTEL [Concomitant]
  20. CATEFLU [Concomitant]
  21. VENTOLIN [Concomitant]
  22. WESTCORT [Concomitant]

REACTIONS (1)
  - ULCERATIVE KERATITIS [None]
